FAERS Safety Report 5678018-0 (Version None)
Quarter: 2008Q1

REPORT INFORMATION
  Report Type: 
  Country: None (occurrence: None)
  Receive Date: 20080319
  Receipt Date: 20080307
  Transmission Date: 20080703
  Serious: Yes (Death)
  Sender: FDA-Public Use
  Company Number: 025116

PATIENT
  Age: 23 Year
  Sex: 0

DRUGS (4)
  1. VERAPAMIL [Suspect]
     Dosage: ORAL
     Route: 048
  2. DIGOXIN [Suspect]
     Dosage: ORAL
     Route: 048
  3. METOPROLOL TARTRATE [Suspect]
     Dosage: ORAL
     Route: 048
  4. UNSECIFIED DRUGS () [Suspect]

REACTIONS (2)
  - COMPLETED SUICIDE [None]
  - DRUG TOXICITY [None]
